FAERS Safety Report 10470436 (Version 5)
Quarter: 2015Q3

REPORT INFORMATION
  Report Type: Spontaneous
  Country: US (occurrence: US)
  Receive Date: 20140923
  Receipt Date: 20150914
  Transmission Date: 20151125
  Serious: Yes (Death, Hospitalization, Other)
  Sender: FDA-Public Use
  Company Number: US-009507513-1409USA010747

PATIENT
  Sex: Female
  Weight: 117.1 kg

DRUGS (2)
  1. JANUVIA [Suspect]
     Active Substance: SITAGLIPTIN PHOSPHATE
     Indication: TYPE 2 DIABETES MELLITUS
     Dosage: UNK UNK, QD
     Route: 048
     Dates: start: 20061222, end: 20070618
  2. BYETTA [Suspect]
     Active Substance: EXENATIDE
     Indication: TYPE 2 DIABETES MELLITUS
     Dosage: 5 MICROGRAM, BID
     Route: 048
     Dates: start: 20070619, end: 20100216

REACTIONS (68)
  - Metastases to liver [Unknown]
  - Pulmonary embolism [Unknown]
  - Gastrointestinal toxicity [Recovered/Resolved]
  - Device occlusion [Unknown]
  - Chronic kidney disease [Not Recovered/Not Resolved]
  - Anaemia [Unknown]
  - Vertebral lesion [Unknown]
  - Muscular weakness [Unknown]
  - Pancreatic carcinoma metastatic [Fatal]
  - Rotator cuff repair [Unknown]
  - Pyloric stenosis [Unknown]
  - Dehydration [Recovering/Resolving]
  - Gastrointestinal haemorrhage [Unknown]
  - Hepatic steatosis [Unknown]
  - Bile duct stent insertion [Recovering/Resolving]
  - Metastases to lung [Unknown]
  - Ileus [Recovered/Resolved]
  - Cholangitis [Unknown]
  - Aortic arteriosclerosis [Unknown]
  - Nephrolithiasis [Unknown]
  - Uterine leiomyoma [Unknown]
  - Splenic calcification [Unknown]
  - Lymph node calcification [Unknown]
  - Aortic valve sclerosis [Unknown]
  - Depression [Unknown]
  - Diverticulum [Unknown]
  - Osteotomy [Unknown]
  - Anaemia [Unknown]
  - Pancreatic mass [Unknown]
  - Hypertension [Unknown]
  - Osteopenia [Unknown]
  - Cataract operation [Unknown]
  - Breast disorder female [Unknown]
  - Cataract [Unknown]
  - Furuncle [Unknown]
  - Bile duct stone [Unknown]
  - Transaminases increased [Unknown]
  - Hepatocellular injury [Unknown]
  - Pulmonary granuloma [Unknown]
  - Vaginal haemorrhage [Unknown]
  - Metastases to lymph nodes [Unknown]
  - Pneumonia [Unknown]
  - Bile duct stent insertion [Unknown]
  - International normalised ratio increased [Unknown]
  - Bile duct stent insertion [Unknown]
  - Spinal osteoarthritis [Unknown]
  - Cholelithiasis [Unknown]
  - Renal mass [Unknown]
  - Cardiomegaly [Recovering/Resolving]
  - Decubitus ulcer [Recovered/Resolved]
  - Aortic valve stenosis [Unknown]
  - Left ventricle outflow tract obstruction [Unknown]
  - Cardiac murmur [Unknown]
  - Sneezing [Unknown]
  - Basal cell carcinoma [Unknown]
  - Acute kidney injury [Recovered/Resolved]
  - Hypercholesterolaemia [Unknown]
  - Anxiety [Unknown]
  - Lipoma excision [Unknown]
  - Klebsiella infection [Unknown]
  - Pancreaticoduodenectomy [Unknown]
  - Abnormal loss of weight [Unknown]
  - Pyrexia [Recovering/Resolving]
  - Clostridium difficile colitis [Recovered/Resolved]
  - Atrial fibrillation [Unknown]
  - Oedema peripheral [Unknown]
  - Splenic artery aneurysm [Unknown]
  - Arthritis [Unknown]

NARRATIVE: CASE EVENT DATE: 2011
